FAERS Safety Report 9437157 (Version 1)
Quarter: 2013Q3

REPORT INFORMATION
  Report Type: Spontaneous
  Country: US (occurrence: US)
  Receive Date: 20130802
  Receipt Date: 20130802
  Transmission Date: 20140515
  Serious: Yes (Other)
  Sender: FDA-Public Use
  Company Number: US-BAYER-2013-092196

PATIENT
  Age: 47 Year
  Sex: Female

DRUGS (8)
  1. YAZ [Suspect]
     Indication: OVARIAN CYST
  2. YASMIN [Suspect]
  3. OCELLA [Suspect]
  4. TOPROL XL [Concomitant]
     Dosage: UNK
     Dates: start: 20090420, end: 20090702
  5. CITALOPRAM [Concomitant]
     Dosage: UNK
     Dates: start: 20090529, end: 20090702
  6. SYNTHROID [Concomitant]
     Dosage: UNK
     Dates: start: 20090404, end: 20090607
  7. CEFDINIR [Concomitant]
     Dosage: UNK
     Dates: start: 20090520
  8. INDAPAMIDE [Concomitant]

REACTIONS (2)
  - Thrombophlebitis superficial [Recovered/Resolved]
  - Deep vein thrombosis [None]
